FAERS Safety Report 8966784 (Version 2)
Quarter: 2013Q1

REPORT INFORMATION
  Report Type: Spontaneous
  Country: US (occurrence: US)
  Receive Date: 20121217
  Receipt Date: 20130111
  Transmission Date: 20140127
  Serious: Yes (Hospitalization, Other)
  Sender: FDA-Public Use
  Company Number: US-JNJFOC-20121203470

PATIENT
  Age: 61 None
  Sex: Male
  Weight: 81.56 kg

DRUGS (13)
  1. REMICADE [Suspect]
     Indication: COLITIS ULCERATIVE
     Dosage: 500 ML NSS. APPROXIMATELY RECEIVED 2 INFUSIONS OF INFLIXIMAB.
     Route: 042
     Dates: start: 20121217
  2. REMICADE [Suspect]
     Indication: COLITIS ULCERATIVE
     Dosage: 500 ML NSS. APPROXIMATELY RECEIVED 2 INFUSIONS OF INFLIXIMAB.
     Route: 042
     Dates: start: 20121129
  3. REMICADE [Suspect]
     Indication: COLITIS ULCERATIVE
     Dosage: 500 ML NSS
     Route: 042
     Dates: start: 2012
  4. REMICADE [Suspect]
     Indication: CROHN^S DISEASE
     Dosage: 500 ML NSS. APPROXIMATELY RECEIVED 2 INFUSIONS OF INFLIXIMAB.
     Route: 042
     Dates: start: 20121129
  5. REMICADE [Suspect]
     Indication: CROHN^S DISEASE
     Dosage: 500 ML NSS
     Route: 042
     Dates: start: 2012
  6. REMICADE [Suspect]
     Indication: CROHN^S DISEASE
     Dosage: 500 ML NSS. APPROXIMATELY RECEIVED 2 INFUSIONS OF INFLIXIMAB.
     Route: 042
     Dates: start: 20121217
  7. STEROIDS NOS [Concomitant]
     Indication: CROHN^S DISEASE
     Route: 054
  8. ASACOL [Concomitant]
     Indication: COLITIS ULCERATIVE
     Route: 065
  9. CALCIUM [Concomitant]
     Route: 065
  10. METAMUCIL [Concomitant]
     Indication: COLITIS ULCERATIVE
     Route: 065
  11. SOLU CORTEF [Concomitant]
     Indication: PREMEDICATION
     Route: 042
     Dates: start: 20121217
  12. BENADRYL [Concomitant]
     Indication: PREMEDICATION
     Route: 042
     Dates: start: 20121217
  13. APAP [Concomitant]
     Indication: PREMEDICATION
     Route: 048
     Dates: start: 20121217

REACTIONS (7)
  - Adverse drug reaction [Unknown]
  - Laryngeal oedema [Not Recovered/Not Resolved]
  - Infusion related reaction [Not Recovered/Not Resolved]
  - Dry skin [Not Recovered/Not Resolved]
  - Rash [Not Recovered/Not Resolved]
  - Rhinorrhoea [Not Recovered/Not Resolved]
  - Lacrimation increased [Not Recovered/Not Resolved]
